FAERS Safety Report 6666887-7 (Version None)
Quarter: 2010Q2

REPORT INFORMATION
  Report Type: 
  Country: None (occurrence: None)
  Receive Date: 20100405
  Receipt Date: 20100324
  Transmission Date: 20101027
  Serious: Yes (Other)
  Sender: FDA-Public Use
  Company Number: US-JNJFOC-20100307020

PATIENT
  Age: 12 Year
  Sex: Male
  Weight: 42.64 kg

DRUGS (1)
  1. TYLENOL COLD HEAD CONGESTION SEVERE COOL BURST DAYTIME [Suspect]
     Indication: MUSCLE SPASMS
     Route: 048

REACTIONS (6)
  - CONVULSION [None]
  - HYPERHIDROSIS [None]
  - NAUSEA [None]
  - PRODUCT COMMINGLING [None]
  - TREMOR [None]
  - WRONG DRUG ADMINISTERED [None]
